FAERS Safety Report 16076960 (Version 1)
Quarter: 2019Q1

REPORT INFORMATION
  Report Type: Spontaneous
  Country: US (occurrence: US)
  Receive Date: 20190315
  Receipt Date: 20190315
  Transmission Date: 20190418
  Serious: No
  Sender: FDA-Public Use
  Company Number: US-AMGEN-USASP2019038268

PATIENT
  Age: 76 Year
  Sex: Female
  Weight: 60.33 kg

DRUGS (1)
  1. PROLIA [Suspect]
     Active Substance: DENOSUMAB
     Indication: BONE DISORDER
     Dosage: UNK
     Route: 065
     Dates: start: 2017

REACTIONS (6)
  - Insomnia [Unknown]
  - Arthritis [Unknown]
  - Injection site pain [Unknown]
  - Dyspnoea [Unknown]
  - Sinus congestion [Unknown]
  - Hypersensitivity [Unknown]

NARRATIVE: CASE EVENT DATE: 20190220
